FAERS Safety Report 5489927-X (Version None)
Quarter: 2007Q4

REPORT INFORMATION
  Report Type: 
  Country: None (occurrence: None)
  Receive Date: 20071018
  Receipt Date: 20071010
  Transmission Date: 20080405
  Serious: Yes (Death)
  Sender: FDA-Public Use
  Company Number: CA-SHR-CA-2007-039164

PATIENT
  Age: 56 Year
  Sex: Male

DRUGS (5)
  1. BETASERON [Suspect]
  2. BACLOFEN [Concomitant]
  3. HYDROMORPHONE HYDROCHLORIDE [Concomitant]
  4. VITAMINS [Concomitant]
  5. HYPNOTICS AND SEDATIVES [Concomitant]
     Route: 050

REACTIONS (1)
  - LUNG CANCER METASTATIC [None]
